FAERS Safety Report 5663278-2 (Version None)
Quarter: 2008Q1

REPORT INFORMATION
  Report Type: 
  Country: None (occurrence: None)
  Receive Date: 20080313
  Receipt Date: 20080304
  Transmission Date: 20080703
  Serious: Yes (Other)
  Sender: FDA-Public Use
  Company Number: US-PFIZER INC-2008021899

PATIENT
  Age: 51 Year
  Sex: Female
  Weight: 88.9 kg

DRUGS (7)
  1. CHANTIX [Suspect]
     Indication: SMOKING CESSATION THERAPY
     Route: 048
  2. ASPIRIN [Concomitant]
  3. FISH OIL [Concomitant]
  4. LIPITOR [Concomitant]
  5. TRICOR [Concomitant]
  6. PREVACID [Concomitant]
  7. CARBAMAZEPINE [Concomitant]

REACTIONS (2)
  - BLOOD PRESSURE INCREASED [None]
  - FEELING ABNORMAL [None]
